FAERS Safety Report 8397619-2 (Version None)
Quarter: 2012Q2

REPORT INFORMATION
  Report Type: 
  Country: None (occurrence: None)
  Receive Date: 20120531
  Receipt Date: 20120524
  Transmission Date: 20120825
  Serious: Yes (Hospitalization)
  Sender: FDA-Public Use
  Company Number: BR-US-EMD SERONO, INC.-7053527

PATIENT
  Sex: Female

DRUGS (5)
  1. MELOXICAM [Concomitant]
  2. MAGNESIUM HYDROXIDE TAB [Concomitant]
  3. REBIF [Suspect]
     Indication: RELAPSING-REMITTING MULTIPLE SCLEROSIS
     Dates: start: 20090201
  4. REBIF [Suspect]
     Route: 058
  5. ACETAMINOPHEN [Concomitant]

REACTIONS (5)
  - INJECTION SITE ERYTHEMA [None]
  - BRANCHIAL CYST [None]
  - NEOPLASM MALIGNANT [None]
  - HYPOAESTHESIA [None]
  - ALOPECIA [None]
